FAERS Safety Report 9061294 (Version 1)
Quarter: 2013Q1

REPORT INFORMATION
  Report Type: Spontaneous
  Country: US (occurrence: None)
  Receive Date: 20130208
  Receipt Date: 20130208
  Transmission Date: 20140127
  Serious: Yes (Death, Hospitalization)
  Sender: FDA-Public Use
  Company Number: None

PATIENT
  Age: 64 Year
  Sex: Male
  Weight: 90.4 kg

DRUGS (9)
  1. DECITABINE [Suspect]
     Dosage: 0.2 MG/KG SQ
     Route: 058
     Dates: start: 20100907, end: 20110730
  2. BENAZEPRIL [Concomitant]
  3. OMEPRAZOLE [Concomitant]
  4. GLIMPIRIDE [Concomitant]
  5. LEVAQUIN [Concomitant]
  6. METFORMIN [Concomitant]
  7. GLYBURIDE [Concomitant]
  8. LOTREL [Concomitant]
  9. ROSUVASTATION [Concomitant]

REACTIONS (8)
  - Leukaemia [None]
  - Haemodynamic instability [None]
  - Anuria [None]
  - Respiratory failure [None]
  - Metabolic acidosis [None]
  - Blood lactic acid increased [None]
  - Septic shock [None]
  - Multi-organ failure [None]
